FAERS Safety Report 20976761 (Version 3)
Quarter: 2022Q3

REPORT INFORMATION
  Report Type: Spontaneous
  Country: GB (occurrence: None)
  Receive Date: 20220617
  Receipt Date: 20220704
  Transmission Date: 20221026
  Serious: Yes (Other)
  Sender: FDA-Public Use
  Company Number: 2022A224496

PATIENT
  Age: 76 Year
  Sex: Male

DRUGS (6)
  1. LOSEC [Suspect]
     Active Substance: OMEPRAZOLE
     Route: 065
  2. RAMIPRIL [Suspect]
     Active Substance: RAMIPRIL
     Route: 065
  3. RAMIPRIL [Suspect]
     Active Substance: RAMIPRIL
     Route: 065
  4. RIVAROXABAN [Suspect]
     Active Substance: RIVAROXABAN
     Dosage: UNK
     Route: 065
  5. PRADAXA [Concomitant]
     Active Substance: DABIGATRAN ETEXILATE MESYLATE
  6. LYRICA [Concomitant]
     Active Substance: PREGABALIN

REACTIONS (12)
  - Type 2 diabetes mellitus [Unknown]
  - Eye disorder [Unknown]
  - Insomnia [Unknown]
  - Visual impairment [Unknown]
  - Memory impairment [Unknown]
  - Vertigo [Unknown]
  - Tinnitus [Unknown]
  - Headache [Unknown]
  - Dry mouth [Not Recovered/Not Resolved]
  - Lip dry [Not Recovered/Not Resolved]
  - Dyspnoea [Unknown]
  - Mouth ulceration [Recovered/Resolved]
